FAERS Safety Report 26152011 (Version 1)
Quarter: 2025Q4

REPORT INFORMATION
  Report Type: Spontaneous
  Country: US (occurrence: US)
  Receive Date: 20251214
  Receipt Date: 20251214
  Transmission Date: 20260118
  Serious: Yes (Other)
  Sender: CELLTRION
  Company Number: US-CELLTRION INC.-2025US044553

PATIENT

DRUGS (37)
  1. INFLIXIMAB [Suspect]
     Active Substance: INFLIXIMAB
     Indication: Colitis
     Dosage: 10 MG/KG (LOADING DOSE)
     Route: 042
  2. INFLIXIMAB [Suspect]
     Active Substance: INFLIXIMAB
     Dosage: 10 MG/KG (SECOND INDUCTION DOSE GIVE 3 DAYS POST DISCHARGE)
     Route: 042
  3. ADALIMUMAB [Suspect]
     Active Substance: ADALIMUMAB
     Indication: Psoriatic arthropathy
     Dosage: UNK
  4. ADALIMUMAB [Suspect]
     Active Substance: ADALIMUMAB
  5. USTEKINUMAB [Suspect]
     Active Substance: USTEKINUMAB
     Indication: Psoriatic arthropathy
  6. IXEKIZUMAB [Concomitant]
     Active Substance: IXEKIZUMAB
     Indication: Arthralgia
     Dosage: 160 MG
     Route: 058
  7. IXEKIZUMAB [Concomitant]
     Active Substance: IXEKIZUMAB
     Dosage: 80 MG, EVERY 4 WEEKS (4 MAINTENANCE DOSES)
     Route: 058
  8. PREDNISONE [Concomitant]
     Active Substance: PREDNISONE
     Indication: Colitis
     Dosage: 40 MG
     Route: 048
  9. PREDNISONE [Concomitant]
     Active Substance: PREDNISONE
     Indication: Adrenal insufficiency
     Dosage: 40 MG (POSTOPERATIVE DAY 6)
     Route: 048
  10. PREDNISONE [Concomitant]
     Active Substance: PREDNISONE
     Dosage: 40 MG (TAPER STARTING AT 40 MG AND DECREASING BY 10 MG WEEKLY TO 5 MG)
     Route: 048
  11. PREDNISONE [Concomitant]
     Active Substance: PREDNISONE
     Dosage: 20 MG
     Route: 048
  12. METHYLPREDNISOLONE [Concomitant]
     Active Substance: METHYLPREDNISOLONE
     Indication: Colitis
     Dosage: 125 MG, DAILY
     Route: 042
  13. METHYLPREDNISOLONE [Concomitant]
     Active Substance: METHYLPREDNISOLONE
     Indication: Procedural hypotension
     Dosage: 50 MG, DAILY
     Route: 042
  14. BUDESONIDE [Concomitant]
     Active Substance: BUDESONIDE
     Indication: Colitis
     Dosage: 9 MG, DAILY
     Route: 048
  15. MESALAMINE [Concomitant]
     Active Substance: MESALAMINE
     Indication: Colitis
     Dosage: 4 G, DAILY
     Route: 048
  16. LOPERAMIDE [Concomitant]
     Active Substance: LOPERAMIDE
     Indication: Diarrhoea
     Route: 048
  17. MORPHINE [Concomitant]
     Active Substance: MORPHINE
     Indication: Abdominal pain
     Route: 042
  18. IBUPROFEN [Concomitant]
     Active Substance: IBUPROFEN
     Indication: Abdominal pain
     Route: 048
  19. PIPERACILLIN AND TAZOBACTAM [Concomitant]
     Active Substance: PIPERACILLIN SODIUM\TAZOBACTAM SODIUM
     Indication: Pneumoperitoneum
     Dosage: 3.375 G EVERY 6 HOURS
     Route: 042
  20. PIPERACILLIN AND TAZOBACTAM [Concomitant]
     Active Substance: PIPERACILLIN SODIUM\TAZOBACTAM SODIUM
     Dosage: 3.375 G EVERY 6 HOURS (8 DAYS)
     Route: 042
  21. METHYLPREDNISOLONE [Concomitant]
     Active Substance: METHYLPREDNISOLONE
     Indication: Colitis
  22. METHYLPREDNISOLONE [Concomitant]
     Active Substance: METHYLPREDNISOLONE
     Indication: Procedural hypotension
  23. CIPROFLOXACIN [Concomitant]
     Active Substance: CIPROFLOXACIN
     Dosage: 500 MG, TWICE DAILY
     Route: 048
  24. CIPROFLOXACIN [Concomitant]
     Active Substance: CIPROFLOXACIN
     Dosage: 3-WEEK COURSE
     Route: 048
  25. CIPROFLOXACIN [Concomitant]
     Active Substance: CIPROFLOXACIN
     Dosage: 500 MG, TWICE DAILY
     Route: 048
  26. METRONIDAZOLE [Concomitant]
     Active Substance: METRONIDAZOLE
     Dosage: 500 MG, FOUR TIMES DAILY (TOTAL 14-DAY ANTIBIOTIC COURSE)
     Route: 048
  27. METRONIDAZOLE [Concomitant]
     Active Substance: METRONIDAZOLE
     Dosage: 3-WEEK COURSE
     Route: 048
  28. METRONIDAZOLE [Concomitant]
     Active Substance: METRONIDAZOLE
     Dosage: 500 MG, THREE TIMES DAILY (TOTAL 14-DAY ANTIBIOTIC COURSE)
     Route: 048
  29. CIPROFLOXACIN [Concomitant]
     Active Substance: CIPROFLOXACIN
     Dosage: UNK
     Route: 042
  30. CIPROFLOXACIN [Concomitant]
     Active Substance: CIPROFLOXACIN
     Dosage: UNK
     Route: 042
  31. METRONIDAZOLE [Concomitant]
     Active Substance: METRONIDAZOLE
     Dosage: UNK
     Route: 042
  32. METRONIDAZOLE [Concomitant]
     Active Substance: METRONIDAZOLE
     Dosage: UNK
     Route: 042
  33. FLUCONAZOLE [Concomitant]
     Active Substance: FLUCONAZOLE
     Dosage: UNK
     Route: 042
  34. FLUCONAZOLE [Concomitant]
     Active Substance: FLUCONAZOLE
     Dosage: 3-WEEK COURSE
     Route: 048
  35. FLUCONAZOLE [Concomitant]
     Active Substance: FLUCONAZOLE
     Dosage: 400 MG, ONCE DAILY
     Route: 048
  36. MICAFUNGIN [Concomitant]
     Active Substance: MICAFUNGIN SODIUM
     Route: 042
  37. AMOXICILLIN\CLAVULANATE POTASSIUM [Concomitant]
     Active Substance: AMOXICILLIN\CLAVULANATE POTASSIUM
     Dosage: 875 MG/125 MG TWICE DAILY
     Route: 048

REACTIONS (3)
  - Crohn^s disease [Unknown]
  - Intentional product use issue [Unknown]
  - Drug ineffective [Unknown]
